FAERS Safety Report 16880836 (Version 2)
Quarter: 2019Q4

REPORT INFORMATION
  Report Type: Spontaneous
  Country: FR (occurrence: FR)
  Receive Date: 20191003
  Receipt Date: 20191003
  Transmission Date: 20200122
  Serious: Yes (Other)
  Sender: FDA-Public Use
  Company Number: FR-PFIZER INC-2019413823

PATIENT
  Age: 77 Year
  Sex: Male

DRUGS (4)
  1. PREDNISONE. [Suspect]
     Active Substance: PREDNISONE
     Indication: BLASTIC PLASMACYTOID DENDRITIC CELL NEOPLASIA
     Dosage: 40 MG/M2, 1X/DAY FROM D1 TO D5
     Route: 065
     Dates: start: 201806, end: 201811
  2. VINCRISTINE SULFATE. [Suspect]
     Active Substance: VINCRISTINE SULFATE
     Indication: BLASTIC PLASMACYTOID DENDRITIC CELL NEOPLASIA
     Dosage: 1 MG, UNK AT D1
     Route: 065
     Dates: start: 201806, end: 201811
  3. CYCLOPHOSPHAMIDE. [Suspect]
     Active Substance: CYCLOPHOSPHAMIDE
     Indication: BLASTIC PLASMACYTOID DENDRITIC CELL NEOPLASIA
     Dosage: 375 MG/M2, UNK AT D1
     Route: 065
     Dates: start: 201806, end: 201811
  4. DOXORUBICIN HCL [Suspect]
     Active Substance: DOXORUBICIN HYDROCHLORIDE
     Indication: BLASTIC PLASMACYTOID DENDRITIC CELL NEOPLASIA
     Dosage: 25 MG/M2, UNK AT D1
     Route: 065
     Dates: start: 201806, end: 201811

REACTIONS (5)
  - Skin lesion [Recovering/Resolving]
  - Product use in unapproved indication [Unknown]
  - Drug ineffective for unapproved indication [Unknown]
  - Therapy non-responder [Unknown]
  - Off label use [Unknown]
